FAERS Safety Report 6976685-2 (Version None)
Quarter: 2010Q3

REPORT INFORMATION
  Report Type: 
  Country: None (occurrence: None)
  Receive Date: 20100910
  Receipt Date: 20100901
  Transmission Date: 20110219
  Serious: Yes (Other)
  Sender: FDA-Public Use
  Company Number: US-SANOFI-AVENTIS-2010SA053506

PATIENT
  Age: 58 Year
  Sex: Female

DRUGS (2)
  1. LANTUS [Suspect]
     Dosage: DOSE:15 UNIT(S)
     Route: 058
     Dates: start: 20050101
  2. OPTICLICK [Suspect]
     Dates: start: 20050101

REACTIONS (2)
  - CATARACT [None]
  - RETINAL DETACHMENT [None]
